FAERS Safety Report 22001200 (Version 4)
Quarter: 2023Q2

REPORT INFORMATION
  Report Type: Report from Study
  Country: US (occurrence: US)
  Receive Date: 20230216
  Receipt Date: 20230512
  Transmission Date: 20230722
  Serious: Yes (Hospitalization, Other)
  Sender: FDA-Public Use
  Company Number: US-TAKEDA-2023TUS016359

PATIENT
  Age: 60 Year
  Sex: Female

DRUGS (4)
  1. TEDUGLUTIDE [Suspect]
     Active Substance: TEDUGLUTIDE
     Indication: Short-bowel syndrome
     Dosage: 5.6 MILLIGRAM, QD
     Route: 058
     Dates: start: 20230204
  2. TEDUGLUTIDE [Suspect]
     Active Substance: TEDUGLUTIDE
     Indication: Short-bowel syndrome
     Dosage: 5.6 MILLIGRAM, QD
     Route: 058
     Dates: start: 20230204
  3. TEDUGLUTIDE [Suspect]
     Active Substance: TEDUGLUTIDE
     Indication: Short-bowel syndrome
     Dosage: 5.6 MILLIGRAM, QD
     Route: 058
     Dates: start: 20230204
  4. TEDUGLUTIDE [Suspect]
     Active Substance: TEDUGLUTIDE
     Indication: Short-bowel syndrome
     Dosage: 5.6 MILLIGRAM, QD
     Route: 058
     Dates: start: 20230204

REACTIONS (10)
  - Pyrexia [Unknown]
  - Asthenia [Unknown]
  - Dehydration [Unknown]
  - Dizziness [Unknown]
  - Frequent bowel movements [Unknown]
  - Fistula [Unknown]
  - Vascular device infection [Unknown]
  - Nausea [Unknown]
  - Vomiting [Unknown]
  - Parosmia [Unknown]

NARRATIVE: CASE EVENT DATE: 20230213
